FAERS Safety Report 5818715-7 (Version None)
Quarter: 2008Q3

REPORT INFORMATION
  Report Type: 
  Country: None (occurrence: None)
  Receive Date: 20080717
  Receipt Date: 20080717
  Transmission Date: 20090109
  Serious: Yes (Hospitalization)
  Sender: FDA-Public Use
  Company Number: None

PATIENT
  Age: 55 Year
  Sex: Male
  Weight: 97.4 kg

DRUGS (1)
  1. QUININE [Suspect]
     Indication: MUSCLE SPASMS
     Dates: start: 20080515, end: 20080710

REACTIONS (8)
  - EPISTAXIS [None]
  - GINGIVAL BLEEDING [None]
  - HAEMORRHOIDAL HAEMORRHAGE [None]
  - HEADACHE [None]
  - INSOMNIA [None]
  - PLATELET COUNT DECREASED [None]
  - RASH [None]
  - SUBARACHNOID HAEMORRHAGE [None]
